FAERS Safety Report 9128372 (Version 2)
Quarter: 2013Q2

REPORT INFORMATION
  Report Type: Spontaneous
  Country: US (occurrence: US)
  Receive Date: 20130228
  Receipt Date: 20130528
  Transmission Date: 20140414
  Serious: No
  Sender: FDA-Public Use
  Company Number: US-ABBOTT-12P-163-1020586-00

PATIENT
  Sex: Male
  Weight: 145.28 kg

DRUGS (14)
  1. ANDROGEL PUMP [Suspect]
     Indication: BLOOD TESTOSTERONE DECREASED
     Dosage: 2 PUMPS DAILY
     Dates: start: 2012
  2. LOSARTAN HCT [Concomitant]
     Indication: HYPERTENSION
  3. CARVEDILOL [Concomitant]
     Indication: VENTRICULAR EXTRASYSTOLES
  4. CARVEDILOL [Concomitant]
     Indication: HYPERTENSION
  5. AMLODIPINE [Concomitant]
     Indication: HYPERTENSION
  6. LISINOPRIL [Concomitant]
     Indication: HYPERTENSION
  7. GLIMEPIRIDE [Concomitant]
     Indication: TYPE 2 DIABETES MELLITUS
  8. PRAVASTATIN [Concomitant]
     Indication: BLOOD CHOLESTEROL INCREASED
  9. PRAVASTATIN [Concomitant]
     Indication: BLOOD TRIGLYCERIDES INCREASED
  10. TRILIPIX [Concomitant]
     Indication: BLOOD TRIGLYCERIDES INCREASED
  11. JANUVIA [Concomitant]
     Indication: TYPE 2 DIABETES MELLITUS
  12. VICTOZA [Concomitant]
     Indication: TYPE 2 DIABETES MELLITUS
  13. VICTOZA [Concomitant]
     Indication: INSULIN RESISTANCE
  14. ASPIRIN [Concomitant]
     Indication: PRODUCT USED FOR UNKNOWN INDICATION
     Dosage: IN THE MORNING

REACTIONS (6)
  - Eczema [Not Recovered/Not Resolved]
  - Dry skin [Not Recovered/Not Resolved]
  - Rash [Not Recovered/Not Resolved]
  - Blood testosterone decreased [Recovered/Resolved]
  - Device malfunction [Recovered/Resolved]
  - Drug dose omission [Not Recovered/Not Resolved]
